FAERS Safety Report 6016334-3 (Version None)
Quarter: 2008Q4

REPORT INFORMATION
  Report Type: 
  Country: None (occurrence: None)
  Receive Date: 20081218
  Receipt Date: 20081210
  Transmission Date: 20090506
  Serious: Yes (Hospitalization)
  Sender: FDA-Public Use
  Company Number: CERZ-1000434

PATIENT
  Age: 71 Year
  Weight: 73 kg

DRUGS (12)
  1. CEREZYME [Suspect]
     Indication: GAUCHER'S DISEASE
     Dosage: 4800 U, Q2W; INTRAVENOUS; 2200 U, Q2W; INTRAVENOUS
     Route: 042
     Dates: start: 20051201
  2. METOPROLOL TARTRATE [Concomitant]
  3. FINASTERIDE [Concomitant]
  4. MIRAPEX [Concomitant]
  5. CLONIDINE HCL PCH (CLONIDINE HYDROCHLORIDE) [Concomitant]
  6. DIOVAN [Concomitant]
  7. NEXIUM (ESOMEPRAZOLE SODIUM) [Concomitant]
  8. SINEMET [Concomitant]
  9. ASACOL [Concomitant]
  10. ASPIRIN [Concomitant]
  11. LIPITOR [Concomitant]
  12. FOSAMAX [Concomitant]

REACTIONS (1)
  - SPINAL FRACTURE [None]
